FAERS Safety Report 5814072-0 (Version None)
Quarter: 2008Q3

REPORT INFORMATION
  Report Type: 
  Country: None (occurrence: None)
  Receive Date: 20080717
  Receipt Date: 20080716
  Transmission Date: 20090109
  Serious: Yes (Hospitalization)
  Sender: FDA-Public Use
  Company Number: JP-BOEHRINGER INGELHEIM GMBH, GERMANY-2008-BP-06124NB

PATIENT
  Sex: Female
  Weight: 57 kg

DRUGS (3)
  1. MICARDIS [Suspect]
     Indication: HYPERTENSION
     Route: 048
     Dates: start: 20070207, end: 20070903
  2. ARTIST [Concomitant]
     Indication: HYPERTENSION
     Route: 048
     Dates: start: 20070326, end: 20070903
  3. AMLODIPINE [Concomitant]
     Indication: HYPERTENSION
     Route: 048
     Dates: start: 20070122

REACTIONS (2)
  - SPINAL COLUMN STENOSIS [None]
  - WEIGHT DECREASED [None]
